FAERS Safety Report 9104818 (Version 3)
Quarter: 2013Q1

REPORT INFORMATION
  Report Type: Report from Study
  Country: US (occurrence: US)
  Receive Date: 20130220
  Receipt Date: 20130307
  Transmission Date: 20140127
  Serious: Yes (Hospitalization)
  Sender: FDA-Public Use
  Company Number: US-JNJFOC-20130210653

PATIENT
  Age: 55 Year
  Sex: Female
  Weight: 48.99 kg

DRUGS (1)
  1. USTEKINUMAB [Suspect]
     Indication: PSORIASIS
     Route: 058
     Dates: start: 201005

REACTIONS (2)
  - Pneumonia aspiration [Recovered/Resolved]
  - Alcohol poisoning [Recovered/Resolved with Sequelae]
